FAERS Safety Report 25888760 (Version 1)
Quarter: 2025Q4

REPORT INFORMATION
  Report Type: Spontaneous
  Country: EU (occurrence: EU)
  Receive Date: 20251007
  Receipt Date: 20251007
  Transmission Date: 20260118
  Serious: Yes (Hospitalization)
  Sender: ROCHE
  Company Number: EU-ROCHE-10000398226

PATIENT
  Age: 69 Year
  Sex: Female

DRUGS (9)
  1. ROZLYTREK [Suspect]
     Active Substance: ENTRECTINIB
     Indication: Non-small cell lung cancer
     Route: 065
     Dates: start: 20241015
  2. ROZLYTREK [Suspect]
     Active Substance: ENTRECTINIB
     Route: 065
     Dates: start: 20241030
  3. LAROTRECTINIB [Concomitant]
     Active Substance: LAROTRECTINIB
     Dates: start: 202412, end: 20250303
  4. TAGRISSO [Concomitant]
     Active Substance: OSIMERTINIB
     Dates: start: 20250829
  5. PREDNISOLONE [Concomitant]
     Active Substance: PREDNISOLONE
     Dates: start: 20250903
  6. TAZOBACTAM [Concomitant]
     Active Substance: TAZOBACTAM
  7. LINEZOLID [Concomitant]
     Active Substance: LINEZOLID
  8. METHYLPREDNISOLONE [Concomitant]
     Active Substance: METHYLPREDNISOLONE
     Dates: start: 20231221
  9. DOXYCYCLINE [Concomitant]
     Active Substance: DOXYCYCLINE

REACTIONS (8)
  - Vertigo [Unknown]
  - Nausea [Unknown]
  - Dyspepsia [Unknown]
  - Respiratory failure [Unknown]
  - Cardiac failure [Unknown]
  - Dizziness [Unknown]
  - Pneumonia [Unknown]
  - C-reactive protein increased [Unknown]

NARRATIVE: CASE EVENT DATE: 20241021
